FAERS Safety Report 23822840 (Version 1)
Quarter: 2024Q2

REPORT INFORMATION
  Report Type: Spontaneous
  Country: IT (occurrence: IT)
  Receive Date: 20240506
  Receipt Date: 20240506
  Transmission Date: 20240716
  Serious: Yes (Hospitalization, Other)
  Sender: FDA-Public Use
  Company Number: IT-FreseniusKabi-FK202406676

PATIENT
  Age: 12 Year
  Sex: Female

DRUGS (4)
  1. ADALIMUMAB [Suspect]
     Active Substance: ADALIMUMAB\ISOPROPYL ALCOHOL
     Dosage: UNK, DISCONTINUED BEFORE 1 MONTH OF ADMISSION DUE TO LOSS OF SECONDARY RESPONSE
     Route: 065
  2. ADALIMUMAB [Suspect]
     Active Substance: ADALIMUMAB\ISOPROPYL ALCOHOL
     Indication: Crohn^s disease
     Dosage: UNK, RESTARTED AGAIN AFTER 2 MONTHS OF ADMISSION
     Route: 065
  3. METHOTREXATE [Suspect]
     Active Substance: METHOTREXATE
     Indication: Crohn^s disease
     Route: 065
  4. USTEKINUMAB [Suspect]
     Active Substance: USTEKINUMAB
     Indication: Crohn^s disease
     Dosage: UNK, FORM OF ADMIN: INJECTION, 3 CONSECUTIVE WEEKLY SUBCUTANEOUS DOSES OF  2MG/KG USTEKINUMAB, EQUIV
     Route: 065

REACTIONS (3)
  - Disseminated tuberculosis [Recovered/Resolved]
  - Poncet^s disease [Recovered/Resolved]
  - Treatment failure [Unknown]
